FAERS Safety Report 12647446 (Version 1)
Quarter: 2016Q3

REPORT INFORMATION
  Report Type: Spontaneous
  Country: US (occurrence: US)
  Receive Date: 20160812
  Receipt Date: 20160812
  Transmission Date: 20161109
  Serious: No
  Sender: FDA-Public Use
  Company Number: US-BRAINTREE LABORATORIES-150538

PATIENT
  Age: 55 Year
  Sex: Female
  Weight: 121.56 kg

DRUGS (1)
  1. GOLYTELY [Suspect]
     Active Substance: POLYETHYLENE GLYCOL 3350\POTASSIUM CHLORIDE\SODIUM BICARBONATE\SODIUM CHLORIDE\SODIUM SULFATE ANHYDROUS
     Indication: OFF LABEL USE
     Dosage: ~0.5L
     Route: 048
     Dates: start: 20151220, end: 20151220

REACTIONS (5)
  - Malaise [None]
  - Hypoaesthesia [None]
  - Blood glucose increased [None]
  - Rash macular [None]
  - Blood pressure increased [None]

NARRATIVE: CASE EVENT DATE: 20151220
